FAERS Safety Report 4723050-4 (Version None)
Quarter: 2005Q3

REPORT INFORMATION
  Report Type: 
  Country: None (occurrence: None)
  Receive Date: 20050719
  Receipt Date: 20040604
  Transmission Date: 20060218
  Serious: Yes (Hospitalization)
  Sender: FDA-Public Use
  Company Number: 2004217335US

PATIENT
  Sex: Male

DRUGS (3)
  1. CELEBREX [Suspect]
     Indication: UPPER LIMB FRACTURE
     Dosage: 200 MG
  2. LORTAB [Concomitant]
  3. VITAMINS NOS [Concomitant]

REACTIONS (1)
  - CHOLELITHIASIS [None]
